FAERS Safety Report 4541092-9 (Version None)
Quarter: 2004Q4

REPORT INFORMATION
  Report Type: 
  Country: None (occurrence: None)
  Receive Date: 20041228
  Receipt Date: 20040713
  Transmission Date: 20050328
  Serious: Yes (Death)
  Sender: FDA-Public Use
  Company Number: 50571

PATIENT
  Age: 68 Year
  Sex: Male

DRUGS (2)
  1. URION UNO [Suspect]
     Indication: BENIGN PROSTATIC HYPERPLASIA
  2. DELIX [Suspect]

REACTIONS (1)
  - DEATH [None]
